FAERS Safety Report 8534853-2 (Version None)
Quarter: 2012Q3

REPORT INFORMATION
  Report Type: 
  Country: None (occurrence: None)
  Receive Date: 20120724
  Receipt Date: 20120614
  Transmission Date: 20120928
  Serious: No
  Sender: FDA-Public Use
  Company Number: US-ASTRAZENECA-2012SE24543

PATIENT
  Age: 24089 Day
  Sex: Female
  Weight: 54.4 kg

DRUGS (3)
  1. ASPIRIN [Concomitant]
     Indication: CEREBROVASCULAR ACCIDENT PROPHYLAXIS
  2. SYMBICORT [Suspect]
     Indication: ASTHMA
     Dosage: 80/4.5 MCG, 2 PUFFS TWO TIMES A DAY
     Route: 055
     Dates: start: 20090101
  3. LIPITOR [Concomitant]
     Indication: BLOOD CHOLESTEROL INCREASED

REACTIONS (2)
  - INTENTIONAL DRUG MISUSE [None]
  - ASTHMA [None]
